FAERS Safety Report 22041037 (Version 1)
Quarter: 2023Q1

REPORT INFORMATION
  Report Type: Spontaneous
  Country: US (occurrence: None)
  Receive Date: 20230226
  Receipt Date: 20230226
  Transmission Date: 20230417
  Serious: Yes (Other)
  Sender: FDA-Public Use
  Company Number: None

PATIENT
  Age: 75 Year
  Sex: Female

DRUGS (2)
  1. FLUOROMETHOLONE [Suspect]
     Active Substance: FLUOROMETHOLONE
     Dosage: FREQUENCY : 3 TIMES A DAY;?
     Route: 047
     Dates: start: 20230220, end: 20230220
  2. ARMOUR THYROID [Concomitant]
     Active Substance: THYROID, PORCINE
     Dates: start: 20220312

REACTIONS (2)
  - Burning sensation [None]
  - Erythema [None]

NARRATIVE: CASE EVENT DATE: 20230220
